FAERS Safety Report 9786578 (Version 1)
Quarter: 2013Q4

REPORT INFORMATION
  Report Type: Spontaneous
  Country: US (occurrence: US)
  Receive Date: 20131227
  Receipt Date: 20131227
  Transmission Date: 20140711
  Serious: No
  Sender: FDA-Public Use
  Company Number: US-009507513-1312USA011037

PATIENT
  Age: 0 Year
  Sex: Female
  Weight: 106.58 kg

DRUGS (1)
  1. IMPLANON [Suspect]
     Dosage: UNK
     Route: 059
     Dates: start: 2011

REACTIONS (2)
  - Unintended pregnancy [Unknown]
  - Medical device complication [Unknown]
